FAERS Safety Report 24554348 (Version 1)
Quarter: 2024Q4

REPORT INFORMATION
  Report Type: Report from Study
  Country: FR (occurrence: FR)
  Receive Date: 20241028
  Receipt Date: 20241028
  Transmission Date: 20250114
  Serious: No
  Sender: SANDOZ
  Company Number: FR-SANDOZ-SDZ2024FR089212

PATIENT
  Age: 7 Year
  Sex: Male

DRUGS (1)
  1. OMNITROPE [Suspect]
     Active Substance: SOMATROPIN
     Indication: Product used for unknown indication
     Dosage: 0.3 MG/D FOR 10 DAYS 0.5 MG/D FOR 10 DAYS DAYS THEN 0.7MG/D 7D/7
     Route: 065

REACTIONS (3)
  - Incorrect dose administered [Unknown]
  - Wrong technique in product usage process [Unknown]
  - Device mechanical issue [Unknown]
